FAERS Safety Report 22724109 (Version 3)
Quarter: 2023Q4

REPORT INFORMATION
  Report Type: Spontaneous
  Country: TR (occurrence: TR)
  Receive Date: 20230719
  Receipt Date: 20231014
  Transmission Date: 20240110
  Serious: No
  Sender: FDA-Public Use
  Company Number: TR-JNJFOC-20230729972

PATIENT

DRUGS (1)
  1. SIMPONI [Suspect]
     Active Substance: GOLIMUMAB
     Indication: Product used for unknown indication
     Dosage: STRENGTH: 50.00 MG / 0.50 ML
     Route: 058

REACTIONS (1)
  - Device deployment issue [Unknown]
